FAERS Safety Report 7832291-9 (Version None)
Quarter: 2011Q4

REPORT INFORMATION
  Report Type: 
  Country: None (occurrence: None)
  Receive Date: 20111022
  Receipt Date: 20111005
  Transmission Date: 20120403
  Serious: Yes (Hospitalization)
  Sender: FDA-Public Use
  Company Number: US-BAYER-2011-052097

PATIENT
  Age: 36 Year
  Sex: Female

DRUGS (11)
  1. SINGULAIR [Concomitant]
     Dosage: 10 MG, QD
     Route: 048
     Dates: start: 20090801
  2. NAPROSYN [Concomitant]
     Dosage: 500 MG, BID
     Route: 048
     Dates: start: 20090801
  3. SINGULAIR [Concomitant]
     Dosage: 10 MG, QD
     Dates: start: 20030101
  4. ADVAIR DISKUS 100/50 [Concomitant]
     Dosage: 500 ?G, PRN
     Route: 048
     Dates: start: 20090601
  5. PREDNISONE [Concomitant]
     Dosage: 20 MG, TID
     Dates: start: 20090801
  6. PROAIR HFA [Concomitant]
     Dosage: 1 PUFF(S), PRN
     Dates: start: 20090801
  7. DROSPIRENONE AND ETHINYL ESTRADIOL [Suspect]
     Indication: ACNE
     Dosage: UNK
     Dates: start: 20090101
  8. ACETAMINOPHEN W/ CODEINE [Concomitant]
     Dosage: UNK UNK, TID
     Route: 048
     Dates: start: 20090601
  9. PANTOPRAZOLE [Concomitant]
     Dosage: 40 MG, QD
     Dates: start: 20090801
  10. VENTOLIN HFA [Concomitant]
     Dosage: 2 PUFF(S), PRN
     Route: 048
     Dates: start: 20090601
  11. SIMVASTATIN [Concomitant]
     Dosage: 20 MG, QD
     Route: 048
     Dates: start: 20090801

REACTIONS (3)
  - DEEP VEIN THROMBOSIS [None]
  - INJURY [None]
  - PAIN [None]
